FAERS Safety Report 5463508-6 (Version None)
Quarter: 2007Q3

REPORT INFORMATION
  Report Type: 
  Country: None (occurrence: None)
  Receive Date: 20070920
  Receipt Date: 20070910
  Transmission Date: 20080115
  Serious: Yes (Hospitalization)
  Sender: FDA-Public Use
  Company Number: FR-PFIZER INC-2007075821

PATIENT
  Sex: Female

DRUGS (11)
  1. AMLOR [Suspect]
     Route: 048
     Dates: start: 20070730, end: 20070805
  2. PLAVIX [Concomitant]
  3. DILTIAZEM HCL [Concomitant]
  4. ELISOR [Concomitant]
  5. FORADIL [Concomitant]
  6. OROCAL [Concomitant]
  7. INSULIN [Concomitant]
  8. LASIX [Concomitant]
  9. LANSOPRAZOLE [Concomitant]
  10. VASTAREL [Concomitant]
  11. NOVORAPID [Concomitant]

REACTIONS (1)
  - TONGUE ULCERATION [None]
